FAERS Safety Report 9085896 (Version 1)
Quarter: 2013Q1

REPORT INFORMATION
  Report Type: Report from Study
  Country: US (occurrence: US)
  Receive Date: 20130131
  Receipt Date: 20130131
  Transmission Date: 20140127
  Serious: No
  Sender: FDA-Public Use
  Company Number: US-ABBOTT-12P-163-0995324-00

PATIENT
  Age: 16 Year
  Sex: Male

DRUGS (4)
  1. HUMIRA [Suspect]
     Indication: CROHN^S DISEASE
     Route: 058
     Dates: start: 20120705
  2. PENTASA [Concomitant]
     Indication: CROHN^S DISEASE
  3. FERROUS SULFATE [Concomitant]
     Indication: BLOOD IRON DECREASED
     Dosage: 325MG DAILY
  4. HUMATROPE [Concomitant]
     Indication: GROWTH HORMONE DEFICIENCY

REACTIONS (2)
  - Dry skin [Not Recovered/Not Resolved]
  - Dandruff [Not Recovered/Not Resolved]
